FAERS Safety Report 19172003 (Version 1)
Quarter: 2021Q2

REPORT INFORMATION
  Report Type: Report from Study
  Country: None (occurrence: DE)
  Receive Date: 20210423
  Receipt Date: 20210423
  Transmission Date: 20210717
  Serious: Yes (Other)
  Sender: FDA-Public Use
  Company Number: DE-ABBVIE-21K-062-3867660-00

PATIENT
  Age: 10 Year
  Sex: Male
  Weight: 30 kg

DRUGS (2)
  1. MTX [Concomitant]
     Active Substance: METHOTREXATE SODIUM
     Indication: JUVENILE IDIOPATHIC ARTHRITIS
     Route: 048
     Dates: start: 20131101
  2. HUMIRA [Suspect]
     Active Substance: ADALIMUMAB
     Indication: JUVENILE IDIOPATHIC ARTHRITIS
     Route: 058
     Dates: start: 20130326, end: 20181231

REACTIONS (3)
  - Road traffic accident [Unknown]
  - Fall [Unknown]
  - Tendon rupture [Recovered/Resolved]

NARRATIVE: CASE EVENT DATE: 20200610
